FAERS Safety Report 18873623 (Version 1)
Quarter: 2021Q1

REPORT INFORMATION
  Report Type: Other
  Country: FR (occurrence: FR)
  Receive Date: 20210210
  Receipt Date: 20210210
  Transmission Date: 20210420
  Serious: Yes (Life-Threatening, Hospitalization, Other)
  Sender: FDA-Public Use
  Company Number: FR-DEXPHARM-20210134

PATIENT
  Age: 51 Year
  Sex: Female
  Weight: 38 kg

DRUGS (3)
  1. VENLAFAXINE [Suspect]
     Active Substance: VENLAFAXINE HYDROCHLORIDE
     Route: 048
  2. PREGABALIN 75 MG [Interacting]
     Active Substance: PREGABALIN
     Route: 048
  3. OXAZEPAM. [Interacting]
     Active Substance: OXAZEPAM
     Route: 048

REACTIONS (3)
  - Sinus bradycardia [Recovered/Resolved]
  - Bezoar [Recovered/Resolved]
  - Lactic acidosis [Recovered/Resolved]
